FAERS Safety Report 5856193-2 (Version None)
Quarter: 2008Q3

REPORT INFORMATION
  Report Type: 
  Country: None (occurrence: None)
  Receive Date: 20080825
  Receipt Date: 20080818
  Transmission Date: 20090109
  Serious: Yes (Other)
  Sender: FDA-Public Use
  Company Number: A0743076A

PATIENT
  Age: 78 Year
  Sex: Male

DRUGS (3)
  1. COREG [Suspect]
     Indication: DRUG USE FOR UNKNOWN INDICATION
     Route: 048
     Dates: start: 20050101
  2. DIGOXIN [Concomitant]
  3. POTASSIUM CHLORIDE [Concomitant]

REACTIONS (8)
  - ASTHENIA [None]
  - CONFUSIONAL STATE [None]
  - DIZZINESS [None]
  - FLUID RETENTION [None]
  - JOINT SWELLING [None]
  - MACULAR DEGENERATION [None]
  - NASOPHARYNGITIS [None]
  - SLEEP DISORDER [None]
